FAERS Safety Report 10068042 (Version 4)
Quarter: 2014Q3

REPORT INFORMATION
  Report Type: Report from Study
  Country: US (occurrence: US)
  Receive Date: 20140409
  Receipt Date: 20140725
  Transmission Date: 20150326
  Serious: Yes (Life-Threatening, Hospitalization, Other)
  Sender: FDA-Public Use
  Company Number: US-JNJFOC-20131007077

PATIENT
  Age: 54 Year
  Sex: Female
  Weight: 112.95 kg

DRUGS (60)
  1. HYDRODIURIL [Concomitant]
     Active Substance: HYDROCHLOROTHIAZIDE
     Route: 048
     Dates: start: 20140128
  2. SULFASALAZINE. [Concomitant]
     Active Substance: SULFASALAZINE
     Route: 048
  3. MOBIC [Concomitant]
     Active Substance: MELOXICAM
     Route: 048
  4. DITROPAN-XL [Concomitant]
     Dosage: BY MOUTH DAILY.
     Route: 048
     Dates: start: 20140128
  5. PRINIVIL [Concomitant]
     Active Substance: LISINOPRIL
     Route: 048
  6. DESYREL [Concomitant]
     Active Substance: TRAZODONE HYDROCHLORIDE
     Route: 048
  7. REMICADE [Suspect]
     Active Substance: INFLIXIMAB
     Indication: RHEUMATOID ARTHRITIS
     Dosage: DOSE: 400 UNITS UNSPECIFIED
     Route: 042
     Dates: start: 20120712
  8. REMICADE [Suspect]
     Active Substance: INFLIXIMAB
     Indication: RHEUMATOID ARTHRITIS
     Dosage: DOSE: 400 UNITS UNSPECIFIED
     Route: 042
     Dates: start: 20120119
  9. REMICADE [Suspect]
     Active Substance: INFLIXIMAB
     Indication: RHEUMATOID ARTHRITIS
     Dosage: DOSE: 400 UNITS UNSPECIFIED
     Route: 042
     Dates: start: 20111206
  10. REMICADE [Suspect]
     Active Substance: INFLIXIMAB
     Indication: RHEUMATOID ARTHRITIS
     Dosage: DOSE: 400 UNITS UNSPECIFIED
     Route: 042
     Dates: start: 20120418
  11. DITROPAN-XL [Concomitant]
     Route: 048
  12. DITROPAN-XL [Concomitant]
     Dosage: BY MOUTH DAILY.
     Route: 048
  13. LEVOTHYROXINE [Concomitant]
     Active Substance: LEVOTHYROXINE
     Dosage: BY MOUTH DAILY.
     Route: 048
  14. LEVOTHYROXINE [Concomitant]
     Active Substance: LEVOTHYROXINE
     Route: 048
  15. PRINIVIL [Concomitant]
     Active Substance: LISINOPRIL
     Route: 048
     Dates: start: 20140128
  16. PREVACID [Concomitant]
     Active Substance: LANSOPRAZOLE
     Route: 048
  17. REMICADE [Suspect]
     Active Substance: INFLIXIMAB
     Indication: RHEUMATOID ARTHRITIS
     Dosage: DOSE: 600 UNITS UNSPECIFIED
     Route: 042
     Dates: start: 20120529
  18. LEVOTHYROXINE [Concomitant]
     Active Substance: LEVOTHYROXINE
     Dosage: BY MOUTH DAILY.
     Route: 048
     Dates: start: 20140128
  19. LASIX [Concomitant]
     Active Substance: FUROSEMIDE
     Route: 048
  20. METHOTREXATE [Concomitant]
     Active Substance: METHOTREXATE
     Route: 048
     Dates: start: 20140124
  21. ESOMEPRAZOLE [Concomitant]
     Active Substance: ESOMEPRAZOLE
     Route: 065
  22. HYDROXYCHLOROQUINE [Concomitant]
     Active Substance: HYDROXYCHLOROQUINE
     Route: 048
  23. NORVASC [Concomitant]
     Active Substance: AMLODIPINE BESYLATE
     Route: 048
  24. BUSPAR [Concomitant]
     Active Substance: BUSPIRONE HYDROCHLORIDE
     Route: 048
  25. NORCO [Concomitant]
     Active Substance: ACETAMINOPHEN\HYDROCODONE BITARTRATE
     Indication: PAIN
     Dosage: DOSE: 10 TO 325 MG.??AS NEEDED
     Route: 048
  26. METHOTREXATE [Concomitant]
     Active Substance: METHOTREXATE
     Dosage: 5 TABLETS WEEKLY.
     Route: 048
  27. BENADRYL [Concomitant]
     Active Substance: DIPHENHYDRAMINE HYDROCHLORIDE
     Indication: PREMEDICATION
     Route: 065
     Dates: start: 20111020
  28. REMICADE [Suspect]
     Active Substance: INFLIXIMAB
     Indication: RHEUMATOID ARTHRITIS
     Dosage: DOSE: 400 UNITS UNSPECIFIED
     Route: 042
     Dates: start: 20120301
  29. ZESTRIL [Concomitant]
     Active Substance: LISINOPRIL
     Route: 048
  30. ZESTRIL [Concomitant]
     Active Substance: LISINOPRIL
     Route: 048
     Dates: start: 20140128
  31. PRILOSEC [Concomitant]
     Active Substance: OMEPRAZOLE MAGNESIUM
  32. LYRICA [Concomitant]
     Active Substance: PREGABALIN
     Route: 048
  33. PAXIL [Concomitant]
     Active Substance: PAROXETINE HYDROCHLORIDE
     Route: 048
  34. KLONOPIN [Concomitant]
     Active Substance: CLONAZEPAM
     Dosage: 1 MG BY MOUTH NIGHTLY.
     Route: 048
     Dates: start: 20140129
  35. KLONOPIN [Concomitant]
     Active Substance: CLONAZEPAM
     Dosage: 1 MG BY MOUTH NIGHTLY.
     Route: 048
  36. DESYREL [Concomitant]
     Active Substance: TRAZODONE HYDROCHLORIDE
     Dosage: 100 MG BY MOUTH NIGHTLY.
     Route: 048
     Dates: start: 20140128
  37. WELLCOVORIN [Concomitant]
     Active Substance: LEUCOVORIN CALCIUM
     Route: 048
  38. NORCO [Concomitant]
     Active Substance: ACETAMINOPHEN\HYDROCODONE BITARTRATE
     Indication: PAIN
     Route: 048
     Dates: start: 201201
  39. FAMOTIDINE. [Concomitant]
     Active Substance: FAMOTIDINE
     Route: 048
  40. ABILIFY [Concomitant]
     Active Substance: ARIPIPRAZOLE
     Route: 048
  41. PRILOSEC [Concomitant]
     Active Substance: OMEPRAZOLE MAGNESIUM
     Dates: start: 20140128
  42. VOLTAREN [Concomitant]
     Active Substance: DICLOFENAC SODIUM
     Route: 061
  43. ZAROXOLYN [Concomitant]
     Active Substance: METOLAZONE
     Route: 048
  44. MINOCYCLINE [Concomitant]
     Active Substance: MINOCYCLINE\MINOCYCLINE HYDROCHLORIDE
     Route: 048
  45. CLONAZEPAM. [Concomitant]
     Active Substance: CLONAZEPAM
     Route: 048
  46. REMICADE [Suspect]
     Active Substance: INFLIXIMAB
     Indication: RHEUMATOID ARTHRITIS
     Dosage: DOSE: 400 UNITS UNSPECIFIED
     Route: 042
     Dates: start: 20111020
  47. NORVASC [Concomitant]
     Active Substance: AMLODIPINE BESYLATE
     Route: 048
     Dates: start: 20140128
  48. LYRICA [Concomitant]
     Active Substance: PREGABALIN
     Route: 048
     Dates: start: 20140128
  49. DESYREL [Concomitant]
     Active Substance: TRAZODONE HYDROCHLORIDE
     Dosage: 100 MG BY MOUTH NIGHTLY.
     Route: 048
  50. NITROSTAT [Concomitant]
     Active Substance: NITROGLYCERIN
     Dosage: AS NEEDED
     Route: 060
  51. VOLTAREN [Concomitant]
     Active Substance: DICLOFENAC SODIUM
     Route: 061
     Dates: start: 2014
  52. NORCO [Concomitant]
     Active Substance: ACETAMINOPHEN\HYDROCODONE BITARTRATE
     Indication: PAIN
     Route: 048
     Dates: start: 20140128
  53. DEPO-PROVERA [Concomitant]
     Active Substance: MEDROXYPROGESTERONE ACETATE
     Route: 030
  54. LORAZEPAM. [Concomitant]
     Active Substance: LORAZEPAM
     Route: 048
  55. LORAZEPAM. [Concomitant]
     Active Substance: LORAZEPAM
     Route: 048
  56. AMLODIPINE [Concomitant]
     Active Substance: AMLODIPINE BESYLATE
     Route: 048
  57. REMICADE [Suspect]
     Active Substance: INFLIXIMAB
     Indication: RHEUMATOID ARTHRITIS
     Dosage: DOSE: ^40^ (UNITS UNSPECIFIED)
     Route: 042
     Dates: start: 20111108
  58. MOBIC [Concomitant]
     Active Substance: MELOXICAM
     Route: 048
     Dates: start: 20140127
  59. PAXIL [Concomitant]
     Active Substance: PAROXETINE HYDROCHLORIDE
     Route: 048
     Dates: start: 20140128
  60. BUSPAR [Concomitant]
     Active Substance: BUSPIRONE HYDROCHLORIDE
     Route: 048

REACTIONS (19)
  - Fall [Unknown]
  - Hypertension [Unknown]
  - Infusion related reaction [Unknown]
  - Malaise [Unknown]
  - Oxygen saturation decreased [Unknown]
  - Knee deformity [Unknown]
  - Contraindication to vaccination [Unknown]
  - Pyrexia [Unknown]
  - Cardiac failure congestive [Recovering/Resolving]
  - Respiratory failure [Recovering/Resolving]
  - Urinary tract infection [Unknown]
  - Haematochezia [Unknown]
  - Pulmonary hypertension [Recovering/Resolving]
  - Arthralgia [Unknown]
  - Musculoskeletal pain [Unknown]
  - Respiratory rate increased [Unknown]
  - Constipation [Unknown]
  - Pulmonary embolism [Recovering/Resolving]
  - Bursitis [Unknown]

NARRATIVE: CASE EVENT DATE: 2011
